FAERS Safety Report 19283321 (Version 1)
Quarter: 2021Q2

REPORT INFORMATION
  Report Type: Spontaneous
  Country: FR (occurrence: FR)
  Receive Date: 20210521
  Receipt Date: 20210521
  Transmission Date: 20210717
  Serious: Yes (Hospitalization)
  Sender: FDA-Public Use
  Company Number: FR-AUROBINDO-AUR-APL-2021-020368

PATIENT
  Sex: Female

DRUGS (5)
  1. METHYLPREDNISOLONE HEMISUCCINATE [Suspect]
     Active Substance: METHYLPREDNISOLONE HEMISUCCINATE
     Indication: PRODUCT USED FOR UNKNOWN INDICATION
     Dosage: 69 MILLIGRAM, ONCE A DAY
     Route: 042
     Dates: start: 20180419, end: 20180422
  2. CARMUSTINE. [Suspect]
     Active Substance: CARMUSTINE
     Indication: PRODUCT USED FOR UNKNOWN INDICATION
     Dosage: 540 MILLIGRAM, ONCE A DAY
     Route: 041
     Dates: start: 20180419, end: 20180419
  3. CYTARABINE. [Suspect]
     Active Substance: CYTARABINE
     Indication: PRODUCT USED FOR UNKNOWN INDICATION
     Dosage: 720 MILLIGRAM, ONCE A DAY
     Route: 041
     Dates: start: 20180419, end: 20180422
  4. ETOPOSIDE. [Suspect]
     Active Substance: ETOPOSIDE
     Indication: PRODUCT USED FOR UNKNOWN INDICATION
     Dosage: 360 MILLIGRAM, ONCE A DAY
     Route: 041
     Dates: start: 20180419, end: 20180422
  5. MELPHALAN. [Suspect]
     Active Substance: MELPHALAN
     Indication: PRODUCT USED FOR UNKNOWN INDICATION
     Dosage: 260 MILLIGRAM, ONCE A DAY
     Route: 041
     Dates: start: 20180423, end: 20180423

REACTIONS (3)
  - Bacterial infection [Recovered/Resolved]
  - Mucosal inflammation [Recovered/Resolved]
  - Aplasia [Recovered/Resolved]

NARRATIVE: CASE EVENT DATE: 20180423
